FAERS Safety Report 8511604-9 (Version None)
Quarter: 2012Q3

REPORT INFORMATION
  Report Type: 
  Country: None (occurrence: None)
  Receive Date: 20120716
  Receipt Date: 20120709
  Transmission Date: 20120928
  Serious: Yes (Other)
  Sender: FDA-Public Use
  Company Number: PHHY2012AU059578

PATIENT
  Sex: Female
  Weight: 60 kg

DRUGS (1)
  1. FEMARA [Suspect]
     Indication: BREAST CANCER
     Dosage: UNK
     Route: 048
     Dates: start: 20100101, end: 20120401

REACTIONS (6)
  - INTERVERTEBRAL DISC PROTRUSION [None]
  - METASTASES TO BONE [None]
  - INTERVERTEBRAL DISC DEGENERATION [None]
  - SPINAL OSTEOARTHRITIS [None]
  - METASTASES TO SPINE [None]
  - PAIN [None]
